FAERS Safety Report 4320980-2 (Version None)
Quarter: 2004Q1

REPORT INFORMATION
  Report Type: 
  Country: None (occurrence: None)
  Receive Date: 20040318
  Receipt Date: 20040305
  Transmission Date: 20041129
  Serious: Yes (Other)
  Sender: FDA-Public Use
  Company Number: 205089

PATIENT
  Age: 56 Year
  Sex: Female

DRUGS (6)
  1. HERCEPTIN [Suspect]
     Indication: BREAST CANCER
     Dosage: SEE IMAGE
  2. DOCETAXEL (DOCETAXEL) [Concomitant]
  3. CARBOPLATIN [Concomitant]
  4. TYLENOL [Concomitant]
  5. ATACAND [Concomitant]
  6. BENADRYL [Concomitant]

REACTIONS (3)
  - ARRHYTHMIA [None]
  - DYSPNOEA [None]
  - MYOCARDIAL INFARCTION [None]
